FAERS Safety Report 19067778 (Version 2)
Quarter: 2021Q3

REPORT INFORMATION
  Report Type: Report from Study
  Country: US (occurrence: US)
  Receive Date: 20210329
  Receipt Date: 20210913
  Transmission Date: 20211014
  Serious: Yes (Other)
  Sender: FDA-Public Use
  Company Number: US-MYLANLABS-2021M1017217

PATIENT
  Sex: Male
  Weight: 91 kg

DRUGS (1)
  1. GLATIRAMER ACETATE INJECTION [Suspect]
     Active Substance: GLATIRAMER ACETATE
     Indication: RELAPSING-REMITTING MULTIPLE SCLEROSIS
     Dosage: 3X PER WEEK
     Route: 058
     Dates: end: 202108

REACTIONS (4)
  - Injection site mass [Unknown]
  - Drug ineffective [Not Recovered/Not Resolved]
  - Multiple sclerosis [Unknown]
  - Dyskinesia [Unknown]
